FAERS Safety Report 11834061 (Version 3)
Quarter: 2016Q3

REPORT INFORMATION
  Report Type: Spontaneous
  Country: DE (occurrence: DE)
  Receive Date: 20151214
  Receipt Date: 20160722
  Transmission Date: 20161109
  Serious: Yes (Death, Life-Threatening, Hospitalization, Other)
  Sender: FDA-Public Use
  Company Number: DE-MUNDIPHARMA DS AND PHARMACOVIGILANCE-DEU-2015-0017468

PATIENT
  Age: 65 Year
  Sex: Male
  Weight: 75 kg

DRUGS (3)
  1. TAVOR (LORAZEPAM) [Suspect]
     Active Substance: LORAZEPAM
     Indication: PRODUCT USED FOR UNKNOWN INDICATION
     Dosage: UNK, SINGLE
     Route: 065
     Dates: start: 20151202, end: 20151202
  2. NOVALGIN [Concomitant]
     Active Substance: METAMIZOLE SODIUM
     Indication: PAIN
     Route: 065
  3. MSI [Suspect]
     Active Substance: MORPHINE SULFATE
     Indication: CANCER PAIN
     Dosage: 10 MG, SINGLE
     Route: 042
     Dates: start: 20151202, end: 20151202

REACTIONS (7)
  - Muscle twitching [Unknown]
  - Aphasia [Unknown]
  - Fluid intake reduced [Unknown]
  - Feeding disorder [Unknown]
  - Coma [Unknown]
  - Victim of homicide [Fatal]
  - Tremor [Unknown]

NARRATIVE: CASE EVENT DATE: 20151202
